FAERS Safety Report 9695184 (Version 1)
Quarter: 2013Q4

REPORT INFORMATION
  Report Type: Spontaneous
  Country: US (occurrence: US)
  Receive Date: 20131119
  Receipt Date: 20131119
  Transmission Date: 20140711
  Serious: No
  Sender: FDA-Public Use
  Company Number: US-BAYER-2013-141379

PATIENT
  Age: 88 Year
  Sex: Female
  Weight: 69.39 kg

DRUGS (4)
  1. ALEVE CAPLET [Suspect]
     Indication: BACK PAIN
     Dosage: 1 DF, PRN
     Route: 048
     Dates: start: 201311
  2. ALEVE CAPLET [Suspect]
     Indication: BACK PAIN
     Dosage: 3-4 DF, WITHIN 1 AND A HALF HOURS
     Route: 048
     Dates: start: 20131118
  3. SYNTHROID [Concomitant]
  4. ATENOLOL [Concomitant]

REACTIONS (1)
  - Extra dose administered [None]
